FAERS Safety Report 13004065 (Version 1)
Quarter: 2016Q4

REPORT INFORMATION
  Report Type: Spontaneous
  Country: US (occurrence: US)
  Receive Date: 20161206
  Receipt Date: 20161206
  Transmission Date: 20170207
  Serious: No
  Sender: FDA-Public Use
  Company Number: US-JAZZ-2016-US-021488

PATIENT
  Sex: Female

DRUGS (21)
  1. XYREM [Suspect]
     Active Substance: SODIUM OXYBATE
     Indication: NARCOLEPSY
     Dosage: 2.5 G, BID
     Route: 048
     Dates: start: 201301, end: 2013
  2. XYREM [Suspect]
     Active Substance: SODIUM OXYBATE
     Dosage: 4.5 G, BID
     Route: 048
     Dates: start: 201306
  3. LAMOTRIGINE. [Concomitant]
     Active Substance: LAMOTRIGINE
  4. ACETAZOLAMIDE. [Concomitant]
     Active Substance: ACETAZOLAMIDE
  5. MOBIC [Concomitant]
     Active Substance: MELOXICAM
  6. VITAMIN B COMPLEX [Concomitant]
     Active Substance: CYANOCOBALAMIN\DEXPANTHENOL\NIACINAMIDE\PYRIDOXINE HYDROCHLORIDE\RIBOFLAVIN 5^-PHOSPHATE SODIUM\THIAMINE HYDROCHLORIDE\VITAMIN B COMPLEX
  7. ABILIFY [Concomitant]
     Active Substance: ARIPIPRAZOLE
  8. CELEBREX [Concomitant]
     Active Substance: CELECOXIB
  9. GABAPENTIN. [Concomitant]
     Active Substance: GABAPENTIN
  10. NORTRIPTYLINE HCL [Concomitant]
     Active Substance: NORTRIPTYLINE HYDROCHLORIDE
  11. XYREM [Suspect]
     Active Substance: SODIUM OXYBATE
     Dosage: 3.75 G, BID
     Route: 048
     Dates: start: 201304, end: 2013
  12. NUVIGIL [Concomitant]
     Active Substance: ARMODAFINIL
  13. METFORMIN HCL [Concomitant]
     Active Substance: METFORMIN HYDROCHLORIDE
  14. PROTONIX                           /00661201/ [Concomitant]
     Active Substance: OMEPRAZOLE
     Indication: NARCOLEPSY
  15. DOXYCYCLINE HYCLATE. [Concomitant]
     Active Substance: DOXYCYCLINE HYCLATE
  16. CYCLOBENZAPRINE [Concomitant]
     Active Substance: CYCLOBENZAPRINE
  17. OXYCODONE AND ACETAMINOPHEN [Concomitant]
     Active Substance: ACETAMINOPHEN\OXYCODONE HYDROCHLORIDE
  18. FETZIMA [Concomitant]
     Active Substance: LEVOMILNACIPRAN HYDROCHLORIDE
  19. ADDERALL [Concomitant]
     Active Substance: AMPHETAMINE ASPARTATE\AMPHETAMINE SULFATE\DEXTROAMPHETAMINE SACCHARATE\DEXTROAMPHETAMINE SULFATE
  20. PRILOSEC [Concomitant]
     Active Substance: OMEPRAZOLE MAGNESIUM
  21. CYMBALTA [Concomitant]
     Active Substance: DULOXETINE HYDROCHLORIDE

REACTIONS (1)
  - Headache [Unknown]
